FAERS Safety Report 22963044 (Version 2)
Quarter: 2023Q4

REPORT INFORMATION
  Report Type: Report from Study
  Country: US (occurrence: US)
  Receive Date: 20230920
  Receipt Date: 20231110
  Transmission Date: 20240109
  Serious: Yes (Hospitalization)
  Sender: FDA-Public Use
  Company Number: US-GILEAD-2023-0643461

PATIENT
  Sex: Male
  Weight: 80.8 kg

DRUGS (1)
  1. SACITUZUMAB GOVITECAN-HZIY [Suspect]
     Active Substance: SACITUZUMAB GOVITECAN-HZIY
     Indication: Neoplasm
     Dosage: 10 MG/KG, D1 AND D8 OF 21 DAY CYCLES
     Route: 042
     Dates: start: 20230424, end: 20230731

REACTIONS (1)
  - Non-cardiac chest pain [Recovered/Resolved with Sequelae]

NARRATIVE: CASE EVENT DATE: 20230805
